FAERS Safety Report 5521758-4 (Version None)
Quarter: 2007Q4

REPORT INFORMATION
  Report Type: 
  Country: None (occurrence: None)
  Receive Date: 20071120
  Receipt Date: 20071113
  Transmission Date: 20080405
  Serious: Yes (Death, Other)
  Sender: FDA-Public Use
  Company Number: US-ROCHE-532312

PATIENT
  Age: 57 Year
  Sex: Male

DRUGS (9)
  1. CELLCEPT [Suspect]
     Dosage: }/= 2 G DAILY STARTING IMMEDIATELY POST TRANSPLANT, OR THE DAY CALCINEURIN INHIBITOR IS DISCONTI+
     Route: 065
  2. ZENAPAX [Suspect]
     Dosage: LOADING DOSE
     Route: 042
  3. ZENAPAX [Suspect]
     Route: 042
  4. CAMPATH [Suspect]
     Route: 065
  5. THYMOGLOBULIN [Concomitant]
     Dosage: ONE DOSE GIVEN IN THE FIRST WEEK OF INDUCTION ANDMAINTENANCE THERAPIES
     Route: 042
  6. PIPERACILLIN AND TAZOBACTAM [Concomitant]
     Indication: ANTIFUNGAL PROPHYLAXIS
     Dosage: POST-OPERATIVELY
  7. FLUCONAZOLE [Concomitant]
     Indication: ANTIFUNGAL PROPHYLAXIS
     Dosage: POST-OPERATIVELY
  8. VALGANCICLOVIR HCL [Concomitant]
     Indication: INFECTION PROPHYLAXIS
     Dosage: TAKEN DAILY
     Route: 048
  9. SULFAMETHOXAZOLE AND TRIMETHOPRIM [Concomitant]
     Indication: INFECTION PROPHYLAXIS
     Dosage: SINGLE STRENGTH TABLETS, TAKEN DAILY

REACTIONS (4)
  - ANAEMIA HAEMOLYTIC AUTOIMMUNE [None]
  - INFECTION [None]
  - MYOCARDIAL INFARCTION [None]
  - TRANSPLANT REJECTION [None]
